FAERS Safety Report 7487667-9 (Version None)
Quarter: 2011Q2

REPORT INFORMATION
  Report Type: 
  Country: None (occurrence: None)
  Receive Date: 20110518
  Receipt Date: 20110511
  Transmission Date: 20111010
  Serious: Yes (Other)
  Sender: FDA-Public Use
  Company Number: FR-SANOFI-AVENTIS-2011SA030117

PATIENT
  Age: 73 Year
  Sex: Female

DRUGS (11)
  1. LASIX [Concomitant]
     Route: 048
  2. REPAGLINIDE [Concomitant]
  3. MULTAQ [Suspect]
     Indication: ATRIAL FIBRILLATION
     Route: 048
     Dates: start: 20101222, end: 20110129
  4. LOGIRENE [Concomitant]
  5. RAMIPRIL [Concomitant]
  6. AMLODIPINE BESYLATE [Concomitant]
  7. MULTAQ [Suspect]
     Route: 048
     Dates: start: 20110129, end: 20110204
  8. PREVISCAN [Concomitant]
     Route: 048
  9. CARDIOCOR [Concomitant]
  10. ATORVASTATIN CALCIUM [Concomitant]
     Dates: end: 20110101
  11. FLECAINIDE ACETATE [Concomitant]
     Indication: ATRIAL FIBRILLATION
     Dates: end: 20101220

REACTIONS (4)
  - BLOOD CREATININE INCREASED [None]
  - OEDEMA PERIPHERAL [None]
  - ECZEMA [None]
  - PAIN IN EXTREMITY [None]
